FAERS Safety Report 17940171 (Version 1)
Quarter: 2020Q2

REPORT INFORMATION
  Report Type: Spontaneous
  Country: US (occurrence: US)
  Receive Date: 20200625
  Receipt Date: 20200625
  Transmission Date: 20200714
  Serious: Yes (Hospitalization, Other)
  Sender: FDA-Public Use
  Company Number: US-SA-2020SA158405

PATIENT

DRUGS (4)
  1. DUPIXENT [Suspect]
     Active Substance: DUPILUMAB
     Indication: CHRONIC RHINOSINUSITIS WITH NASAL POLYPS
  2. DUPIXENT [Suspect]
     Active Substance: DUPILUMAB
     Indication: ASPIRIN-EXACERBATED RESPIRATORY DISEASE
  3. FASENRA [Suspect]
     Active Substance: BENRALIZUMAB
     Dosage: UNK
     Dates: start: 201712, end: 201906
  4. DUPIXENT [Suspect]
     Active Substance: DUPILUMAB
     Indication: ASTHMA
     Dosage: 300 MG, QOW
     Dates: start: 201906, end: 201908

REACTIONS (14)
  - Acute left ventricular failure [Unknown]
  - Acute respiratory distress syndrome [Unknown]
  - Conjunctival haemorrhage [Unknown]
  - Asthma [Unknown]
  - Oedema peripheral [Unknown]
  - Dyspnoea [Unknown]
  - Cardiomyopathy [Unknown]
  - Cyst [Unknown]
  - Amyloidosis [Unknown]
  - Ejection fraction decreased [Unknown]
  - Cardiac amyloidosis [Unknown]
  - Orthopnoea [Unknown]
  - Gait disturbance [Recovering/Resolving]
  - Clostridium difficile infection [Unknown]
